FAERS Safety Report 8130952 (Version 4)
Quarter: 2012Q4

REPORT INFORMATION
  Report Type: 
  Country: US (occurrence: US)
  Receive Date: 20110912
  Receipt Date: 20121023
  Transmission Date: 20130627
  Serious: Yes (Hospitalization)
  Sender: FDA-Public Use
  Company Number: US-BAYER-2011-082111

PATIENT
  Age: 52 Year
  Sex: Female
  Weight: 62.13 kg

DRUGS (6)
  1. YAZ [Suspect]
     Indication: HEAVY PERIODS
     Dosage: UNK
     Dates: start: 200607, end: 200907
  2. YAZ [Suspect]
     Indication: CRAMPS MENSTRUAL
  3. YASMIN [Suspect]
     Dosage: UNK
     Dates: start: 20090309, end: 200907
  4. LEVOQUIN [Concomitant]
     Indication: PNEUMONIA
     Dosage: UNK
     Dates: start: 200906
  5. MULTIVITAMINS [Concomitant]
  6. ANTIBIOTICS [Concomitant]
     Route: 042

REACTIONS (7)
  - Pulmonary embolism [None]
  - Interstitial lung disease [None]
  - Pulmonary fibrosis [None]
  - Pulmonary infarction [None]
  - Pleurisy [None]
  - Injury [None]
  - Chest pain [None]
